FAERS Safety Report 4649378-4 (Version None)
Quarter: 2005Q2

REPORT INFORMATION
  Report Type: 
  Country: None (occurrence: None)
  Receive Date: 20050428
  Receipt Date: 20050428
  Transmission Date: 20051028
  Serious: No
  Sender: FDA-Public Use
  Company Number: None

PATIENT
  Age: 63 Year
  Sex: Male
  Weight: 51 kg

DRUGS (1)
  1. DURAGESIC-100 [Suspect]
     Indication: COLON CANCER
     Dosage: 75 MCG Q 72 HR
     Dates: start: 20000301

REACTIONS (3)
  - INADEQUATE ANALGESIA [None]
  - PHARMACEUTICAL PRODUCT COMPLAINT [None]
  - THERAPEUTIC PRODUCT INEFFECTIVE [None]
